FAERS Safety Report 9123404 (Version 1)
Quarter: 2013Q1

REPORT INFORMATION
  Report Type: Spontaneous
  Country: US (occurrence: US)
  Receive Date: 20130227
  Receipt Date: 20130227
  Transmission Date: 20140127
  Serious: No
  Sender: FDA-Public Use
  Company Number: US-BAYER-2013-022256

PATIENT
  Age: 71 Year
  Sex: Female
  Weight: 71.66 kg

DRUGS (10)
  1. ALEVE CAPLET/TABLET,MIDOL EXTENDED RELIEF CAPLET [Suspect]
     Indication: FEELING OF RELAXATION
     Dosage: 1 DF, UNK
     Route: 048
  2. ALEVE CAPLET/TABLET,MIDOL EXTENDED RELIEF CAPLET [Suspect]
     Indication: SLEEP DISORDER THERAPY
  3. OMEPRAZOLE [Concomitant]
  4. FISH OIL [Concomitant]
  5. VITAMIN C [Concomitant]
  6. ZYRTEC [Concomitant]
  7. METHENAN MAN [Concomitant]
  8. PRIMIDONE [Concomitant]
  9. CRANBERRY [Concomitant]
  10. PROPRANOLOL [Concomitant]

REACTIONS (2)
  - Off label use [None]
  - Expired drug administered [None]
